FAERS Safety Report 6603127-9 (Version None)
Quarter: 2010Q1

REPORT INFORMATION
  Report Type: 
  Country: None (occurrence: None)
  Receive Date: 20100218
  Receipt Date: 20091021
  Transmission Date: 20100710
  Serious: Yes (Hospitalization)
  Sender: FDA-Public Use
  Company Number: 2009SP031843

PATIENT
  Age: 57 Year
  Sex: Male

DRUGS (3)
  1. CORICIDIN D SRT [Suspect]
     Indication: INFLUENZA
     Dosage: 1 DF; QD; PO
     Route: 048
     Dates: start: 20091001
  2. LOSARTAN POTASSIUM [Concomitant]
  3. DOCUSATE SODIUM [Concomitant]

REACTIONS (5)
  - BENIGN PROSTATIC HYPERPLASIA [None]
  - HAEMATURIA [None]
  - OVERDOSE [None]
  - SELF-MEDICATION [None]
  - URINARY RETENTION [None]
